FAERS Safety Report 5671253-7 (Version None)
Quarter: 2008Q1

REPORT INFORMATION
  Report Type: 
  Country: None (occurrence: None)
  Receive Date: 20080318
  Receipt Date: 20080306
  Transmission Date: 20080703
  Serious: Yes (Other)
  Sender: FDA-Public Use
  Company Number: US-PFIZER INC-2008004899

PATIENT
  Sex: Male
  Weight: 84.8 kg

DRUGS (2)
  1. GLIPIZIDE [Suspect]
     Indication: TYPE 2 DIABETES MELLITUS
     Dosage: DAILY DOSE:5MG
     Route: 048
     Dates: start: 20071112, end: 20071201
  2. ZETIA [Concomitant]

REACTIONS (2)
  - BLISTER [None]
  - HYPERSENSITIVITY [None]
